FAERS Safety Report 10619272 (Version 3)
Quarter: 2015Q1

REPORT INFORMATION
  Report Type: Report from Study
  Country: US (occurrence: US)
  Receive Date: 20141202
  Receipt Date: 20150102
  Transmission Date: 20150720
  Serious: Yes (Hospitalization)
  Sender: FDA-Public Use
  Company Number: US-UCBSA-2014019622

PATIENT
  Age: 29 Year
  Sex: Male
  Weight: 67 kg

DRUGS (11)
  1. FLAGYL [Concomitant]
     Active Substance: METRONIDAZOLE\METRONIDAZOLE HYDROCHLORIDE
     Dosage: UNK
     Route: 042
     Dates: end: 20141119
  2. LAMICTAL [Concomitant]
     Active Substance: LAMOTRIGINE
     Indication: SEIZURE
     Dosage: 100 MG, 2X/DAY (BID)
     Route: 048
  3. DILAUDID [Concomitant]
     Active Substance: HYDROMORPHONE HYDROCHLORIDE
     Indication: PAIN
  4. CLONAZEPAM. [Concomitant]
     Active Substance: CLONAZEPAM
     Indication: SEIZURE
     Dosage: 1 MG, 2X/DAY (BID)
     Route: 048
  5. CERTOLIZUMAB PEGOL CD [Suspect]
     Active Substance: CERTOLIZUMAB PEGOL
     Indication: CROHN^S DISEASE
     Dosage: DOSE: 200 MG
     Route: 058
     Dates: start: 20090609, end: 200906
  6. CERTOLIZUMAB PEGOL CD [Suspect]
     Active Substance: CERTOLIZUMAB PEGOL
     Dosage: 200 MG, EV 2 WEEKS(QOW)
     Route: 058
     Dates: start: 20121115
  7. VYVANSE [Concomitant]
     Active Substance: LISDEXAMFETAMINE DIMESYLATE
     Indication: PRODUCT USED FOR UNKNOWN INDICATION
     Dosage: 30 MG, WEEKLY (QW)
     Route: 048
  8. OPIUM [Concomitant]
     Active Substance: OPIUM
     Indication: ABDOMINAL PAIN
     Dosage: 0.6 ML, 4X/DAY (QID)
     Route: 048
     Dates: start: 20140912, end: 201411
  9. CERTOLIZUMAB PEGOL CD [Suspect]
     Active Substance: CERTOLIZUMAB PEGOL
     Dosage: 400 MG, UNK
     Route: 058
     Dates: start: 20090622, end: 20121101
  10. PREDNISONE. [Concomitant]
     Active Substance: PREDNISONE
     Indication: CROHN^S DISEASE
     Dosage: UNK
     Dates: start: 20090601
  11. FLAGYL [Concomitant]
     Active Substance: METRONIDAZOLE\METRONIDAZOLE HYDROCHLORIDE
     Indication: ABSCESS
     Dosage: UNK
     Dates: start: 20090424, end: 20090525

REACTIONS (7)
  - Blood potassium decreased [None]
  - Nausea [Recovered/Resolved]
  - Dehydration [None]
  - Vomiting [Recovered/Resolved]
  - Gastroenteritis viral [None]
  - Crohn^s disease [None]
  - Blood glucose increased [None]

NARRATIVE: CASE EVENT DATE: 20141117
